FAERS Safety Report 7103764-1 (Version None)
Quarter: 2010Q4

REPORT INFORMATION
  Report Type: 
  Country: None (occurrence: None)
  Receive Date: 20101115
  Receipt Date: 20101105
  Transmission Date: 20110411
  Serious: Yes (Death, Hospitalization, Disabling)
  Sender: FDA-Public Use
  Company Number: DE-ROCHE-582267

PATIENT
  Sex: Male
  Weight: 67.3 kg

DRUGS (6)
  1. AVASTIN [Suspect]
     Dosage: DOSE REPORTED AS 340 DF
     Route: 042
     Dates: end: 20090201
  2. FLUOROURACIL [Concomitant]
     Dosage: DOSE REPORTED AS 1360 DF
     Route: 042
     Dates: start: 20081201
  3. FOLINIC ACID [Concomitant]
     Dosage: DOSE REPORTED AS 272 DF
     Route: 042
     Dates: start: 20081201
  4. IRINOTECAN HCL [Concomitant]
     Dosage: DOSE REPORTED AS 245 DF
     Route: 042
     Dates: start: 20081201
  5. PANTOPRAZOLE SODIUM [Concomitant]
     Dosage: LONG TERM THERAPY
     Route: 048
  6. CETUXIMAB [Concomitant]
     Dates: start: 20090201, end: 20090401

REACTIONS (2)
  - MALIGNANT NEOPLASM PROGRESSION [None]
  - OSTEONECROSIS [None]
